FAERS Safety Report 18867360 (Version 1)
Quarter: 2021Q1

REPORT INFORMATION
  Report Type: Spontaneous
  Country: FR (occurrence: FR)
  Receive Date: 20210209
  Receipt Date: 20210209
  Transmission Date: 20210420
  Serious: Yes (Death, Hospitalization)
  Sender: FDA-Public Use
  Company Number: FR-EXELIXIS-CABO-21037139

PATIENT
  Age: 15 Year
  Sex: Female
  Weight: 39 kg

DRUGS (5)
  1. CELLTOP [Suspect]
     Active Substance: ETOPOSIDE
     Indication: EWING^S SARCOMA
     Dosage: 50MG 3 SEMAINES SUR 4
     Route: 048
     Dates: start: 201901, end: 202011
  2. CABOMETYX [Suspect]
     Active Substance: CABOZANTINIB S-MALATE
     Indication: EWING^S SARCOMA
     Route: 048
     Dates: start: 20201124, end: 20201204
  3. KALEORID [Concomitant]
     Active Substance: POTASSIUM CHLORIDE
     Indication: BLOOD POTASSIUM DECREASED
     Dosage: UNK
     Route: 048
     Dates: start: 201905, end: 20201208
  4. LUTENYL [Suspect]
     Active Substance: NOMEGESTROL ACETATE
     Indication: MENOMETRORRHAGIA
     Dosage: 3.75 MG, QD
     Route: 048
     Dates: start: 201903, end: 20210109
  5. BACTRIM [Suspect]
     Active Substance: SULFAMETHOXAZOLE\TRIMETHOPRIM
     Indication: PRODUCT USED FOR UNKNOWN INDICATION
     Dosage: 2400 MG, QD
     Route: 048
     Dates: start: 2019, end: 20210109

REACTIONS (2)
  - Pneumothorax [Not Recovered/Not Resolved]
  - Condition aggravated [Not Recovered/Not Resolved]

NARRATIVE: CASE EVENT DATE: 20201130
